FAERS Safety Report 10068502 (Version 1)
Quarter: 2014Q2

REPORT INFORMATION
  Report Type: Spontaneous
  Country: US (occurrence: US)
  Receive Date: 20140409
  Receipt Date: 20140409
  Transmission Date: 20141212
  Serious: Yes (Hospitalization, Other)
  Sender: FDA-Public Use
  Company Number: US-PFIZER INC-2014099640

PATIENT
  Sex: Male

DRUGS (1)
  1. GEODON [Suspect]
     Dosage: UNK

REACTIONS (4)
  - Atrial fibrillation [Unknown]
  - Fall [Unknown]
  - Feeling drunk [Unknown]
  - Road traffic accident [Unknown]
